FAERS Safety Report 6257487-1 (Version None)
Quarter: 2009Q3

REPORT INFORMATION
  Report Type: 
  Country: None (occurrence: None)
  Receive Date: 20090706
  Receipt Date: 20090625
  Transmission Date: 20100115
  Serious: Yes (Hospitalization, Other)
  Sender: FDA-Public Use
  Company Number: US-ELI_LILLY_AND_COMPANY-US200906006068

PATIENT
  Sex: Female
  Weight: 103.86 kg

DRUGS (4)
  1. BYETTA [Suspect]
     Indication: TYPE 2 DIABETES MELLITUS
     Dosage: 5 UG, 2/D
     Route: 058
     Dates: start: 20080101, end: 20080101
  2. BYETTA [Suspect]
     Dosage: 10 UG, 2/D
     Route: 058
     Dates: start: 20080101, end: 20080901
  3. BYETTA [Suspect]
     Dosage: 10 UG, 2/D
     Route: 058
  4. METFORMIN HCL [Concomitant]
     Dosage: UNK, 2/D

REACTIONS (7)
  - COLITIS [None]
  - DEPRESSED LEVEL OF CONSCIOUSNESS [None]
  - MALAISE [None]
  - PULMONARY THROMBOSIS [None]
  - RENAL FAILURE [None]
  - SURGERY [None]
  - WEIGHT DECREASED [None]
